FAERS Safety Report 25712399 (Version 1)
Quarter: 2025Q3

REPORT INFORMATION
  Report Type: Spontaneous
  Country: JP (occurrence: JP)
  Receive Date: 20250821
  Receipt Date: 20250821
  Transmission Date: 20251020
  Serious: Yes (Life-Threatening, Other)
  Sender: ALEXION PHARMACEUTICALS
  Company Number: JP-ASTRAZENECA-202508JPN014884JP

PATIENT
  Age: 61 Year
  Sex: Female

DRUGS (2)
  1. TAGRISSO [Suspect]
     Active Substance: OSIMERTINIB
     Indication: Non-small cell lung cancer stage IV
     Route: 065
  2. TAGRISSO [Suspect]
     Active Substance: OSIMERTINIB
     Indication: Human epidermal growth factor receptor positive

REACTIONS (7)
  - Nausea [Unknown]
  - Decreased appetite [Unknown]
  - Paronychia [Unknown]
  - Dermatitis acneiform [Unknown]
  - Leukopenia [Unknown]
  - Neutropenia [Unknown]
  - Hypomagnesaemia [Unknown]
